FAERS Safety Report 6687858-0 (Version None)
Quarter: 2010Q2

REPORT INFORMATION
  Report Type: 
  Country: None (occurrence: None)
  Receive Date: 20100409
  Receipt Date: 20091114
  Transmission Date: 20101027
  Serious: Yes (Other)
  Sender: FDA-Public Use
  Company Number: AE  2009-149

PATIENT
  Age: 26 Year
  Sex: Male

DRUGS (6)
  1. FAZACLO ODT [Suspect]
     Dosage: 50MG QAM PO
     Route: 048
     Dates: start: 20080114
  2. FAZACLO ODT [Suspect]
     Dosage: 200MG QPM PO
     Route: 048
     Dates: start: 20080114
  3. HALDOL [Concomitant]
  4. COGENTIN [Concomitant]
  5. PROZAC [Concomitant]
  6. NEXIUM [Concomitant]

REACTIONS (1)
  - TACHYCARDIA [None]
